FAERS Safety Report 24035303 (Version 1)
Quarter: 2024Q3

REPORT INFORMATION
  Report Type: Spontaneous
  Country: CN (occurrence: CN)
  Receive Date: 20240701
  Receipt Date: 20240701
  Transmission Date: 20241016
  Serious: Yes (Other)
  Sender: BAYER
  Company Number: CN-BAYER-2024A094597

PATIENT
  Age: 29 Year
  Sex: Female

DRUGS (1)
  1. AVELOX [Suspect]
     Active Substance: MOXIFLOXACIN HYDROCHLORIDE
     Indication: Pneumonia
     Dosage: 0.4 G, QD
     Route: 041
     Dates: start: 20240617, end: 20240617

REACTIONS (5)
  - Hypotension [Recovering/Resolving]
  - Amaurosis [Recovering/Resolving]
  - Dizziness [Recovering/Resolving]
  - Heart rate increased [None]
  - Respiratory rate increased [None]

NARRATIVE: CASE EVENT DATE: 20240617
